FAERS Safety Report 6136790-X (Version None)
Quarter: 2009Q1

REPORT INFORMATION
  Report Type: 
  Country: None (occurrence: None)
  Receive Date: 20090326
  Receipt Date: 20090326
  Transmission Date: 20090719
  Serious: Yes (Life-Threatening, Hospitalization)
  Sender: FDA-Public Use
  Company Number: None

PATIENT
  Age: 45 Year
  Sex: Female
  Weight: 64.5 kg

DRUGS (1)
  1. ANCEF [Suspect]
     Indication: INFECTION
     Dosage: 1 GM IV
     Route: 042
     Dates: start: 20060826

REACTIONS (5)
  - DYSPNOEA [None]
  - FEELING HOT [None]
  - FOAMING AT MOUTH [None]
  - INFUSION RELATED REACTION [None]
  - UNRESPONSIVE TO STIMULI [None]
